FAERS Safety Report 8887174 (Version 2)
Quarter: 2012Q4

REPORT INFORMATION
  Report Type: 
  Country: US (occurrence: US)
  Receive Date: 20121105
  Receipt Date: 20121217
  Transmission Date: 20130627
  Serious: Yes (Other)
  Sender: FDA-Public Use
  Company Number: US-PFIZER INC-2012274030

PATIENT
  Age: 44 Year
  Sex: Female
  Weight: 58.5 kg

DRUGS (4)
  1. LYRICA [Suspect]
     Indication: PERIPHERAL NERVE INJURY
     Dosage: UNK, 2x/day
     Route: 048
     Dates: start: 201206, end: 2012
  2. LYRICA [Suspect]
     Indication: PERIPHERAL NERVE INJURY
     Dosage: UNK, 2x/day
     Route: 048
     Dates: start: 2012
  3. LYRICA [Suspect]
     Dosage: UNK
     Route: 048
  4. VITAMIN B12 [Concomitant]
     Dosage: UNK

REACTIONS (9)
  - Mental impairment [Not Recovered/Not Resolved]
  - Incorrect dose administered [Unknown]
  - Vision blurred [Not Recovered/Not Resolved]
  - Dizziness [Not Recovered/Not Resolved]
  - Feeling hot [Not Recovered/Not Resolved]
  - Dysarthria [Not Recovered/Not Resolved]
  - Disturbance in attention [Not Recovered/Not Resolved]
  - Speech disorder [Not Recovered/Not Resolved]
  - Balance disorder [Not Recovered/Not Resolved]
